FAERS Safety Report 8737564 (Version 2)
Quarter: 2012Q4

REPORT INFORMATION
  Report Type: 
  Country: AU (occurrence: AU)
  Receive Date: 20120822
  Receipt Date: 20121025
  Transmission Date: 20130627
  Serious: Yes (Hospitalization)
  Sender: FDA-Public Use
  Company Number: AU-BAXTER-2012BAX014610

PATIENT
  Age: 66 Year
  Sex: Male

DRUGS (13)
  1. KIOVIG NORMAL IMMUNOGLOBULIN (HUMAN) 20G/200ML FOR INTRAVENOUS USE INJ [Suspect]
     Indication: SENSORY PERIPHERAL NEUROPATHY
     Route: 042
     Dates: start: 20120814, end: 20120814
  2. KIOVIG NORMAL IMMUNOGLOBULIN (HUMAN) 20G/200ML FOR INTRAVENOUS USE INJ [Suspect]
     Indication: INTENTIONAL USE FOR UNLABELED INDICATION
  3. METFORMIN [Concomitant]
     Indication: TYPE II DIABETES MELLITUS
     Route: 048
  4. DIAMICRON [Concomitant]
     Indication: TYPE II DIABETES MELLITUS
     Route: 048
  5. PANTOPRAZOLE [Concomitant]
     Indication: GERD
     Route: 048
  6. ATENOLOL [Concomitant]
     Indication: HYPERTENSION
     Route: 048
  7. LIPIDIL [Concomitant]
     Indication: BLOOD CHOLESTEROL INCREASED
     Route: 048
  8. LERCANIDIPINE [Concomitant]
     Indication: HYPERTENSION
     Route: 048
  9. EZETROL [Concomitant]
     Indication: BLOOD CHOLESTEROL INCREASED
     Route: 048
  10. ROSUVASTATIN [Concomitant]
     Indication: BLOOD CHOLESTEROL INCREASED
     Route: 048
  11. TELMISARTAN HYDROCHLOROTHIAZIDE [Concomitant]
     Indication: HYPERTENSION
     Dosage: 80/25 MG
     Route: 048
  12. ASPIRIN [Concomitant]
     Indication: CARDIOVASCULAR EVENT PROPHYLAXIS
     Route: 048
  13. INTRAGAM [Concomitant]
     Indication: SENSORY PERIPHERAL NEUROPATHY
     Route: 042

REACTIONS (2)
  - Flank pain [Recovered/Resolved]
  - Chills [Recovered/Resolved]
